FAERS Safety Report 22395565 (Version 2)
Quarter: 2023Q2

REPORT INFORMATION
  Report Type: Spontaneous
  Country: JP (occurrence: JP)
  Receive Date: 20230601
  Receipt Date: 20230608
  Transmission Date: 20230721
  Serious: Yes (Other)
  Sender: FDA-Public Use
  Company Number: JP-Eisai-202302130_LEN-EC_P_1

PATIENT
  Age: 60 Year
  Sex: Female

DRUGS (2)
  1. LENVATINIB [Suspect]
     Active Substance: LENVATINIB
     Indication: Endometrial cancer
     Dosage: DOSE AND FREQUENCY UNKNOWN
     Route: 048
  2. KEYTRUDA [Suspect]
     Active Substance: PEMBROLIZUMAB
     Indication: Endometrial cancer
     Dosage: DOSE AND FREQUENCY UNKNOWN
     Route: 041

REACTIONS (6)
  - Pulmonary toxicity [Unknown]
  - Adrenal insufficiency [Unknown]
  - Palmar-plantar erythrodysaesthesia syndrome [Unknown]
  - Liver disorder [Unknown]
  - Dyspnoea [Unknown]
  - Hypertension [Unknown]
